FAERS Safety Report 17245635 (Version 6)
Quarter: 2021Q4

REPORT INFORMATION
  Report Type: Spontaneous
  Country: US (occurrence: US)
  Receive Date: 20200108
  Receipt Date: 20211028
  Transmission Date: 20220303
  Serious: Yes (Other)
  Sender: FDA-Public Use
  Company Number: US-GILEAD-2020-0445081

PATIENT
  Age: 49 Year
  Sex: Male
  Weight: 86.17 kg

DRUGS (40)
  1. VIREAD [Suspect]
     Active Substance: TENOFOVIR DISOPROXIL FUMARATE
     Indication: HIV infection
     Dosage: UNK
     Route: 065
     Dates: start: 20130104, end: 20130106
  2. ATRIPLA [Suspect]
     Active Substance: EFAVIRENZ\EMTRICITABINE\TENOFOVIR DISOPROXIL FUMARATE
     Indication: HIV infection
     Dosage: UNK
     Route: 048
     Dates: start: 20070131, end: 20170502
  3. ATRIPLA [Suspect]
     Active Substance: EFAVIRENZ\EMTRICITABINE\TENOFOVIR DISOPROXIL FUMARATE
     Dosage: UNK
     Route: 048
     Dates: start: 20160510, end: 20170502
  4. ODEFSEY [Concomitant]
     Active Substance: EMTRICITABINE\RILPIVIRINE HYDROCHLORIDE\TENOFOVIR ALAFENAMIDE FUMARATE
  5. VICODIN [Concomitant]
     Active Substance: ACETAMINOPHEN\HYDROCODONE BITARTRATE
  6. ACYCLOVIR [Concomitant]
     Active Substance: ACYCLOVIR
  7. TOBRAMYCIN [Concomitant]
     Active Substance: TOBRAMYCIN
  8. AMOXICILLIN [Concomitant]
     Active Substance: AMOXICILLIN
  9. AMPICILLIN [Concomitant]
     Active Substance: AMPICILLIN
  10. LISINOPRIL [Concomitant]
     Active Substance: LISINOPRIL
  11. ALUMINUM HYDROXIDE\MAGNESIUM HYDROXIDE [Concomitant]
     Active Substance: ALUMINUM HYDROXIDE\MAGNESIUM HYDROXIDE
  12. ASPIRIN [Concomitant]
     Active Substance: ASPIRIN
  13. ATORVASTATIN [Concomitant]
     Active Substance: ATORVASTATIN
  14. BACTRIM [Concomitant]
     Active Substance: SULFAMETHOXAZOLE\TRIMETHOPRIM
  15. VALIUM [Concomitant]
     Active Substance: DIAZEPAM
  16. LIPITOR [Concomitant]
     Active Substance: ATORVASTATIN CALCIUM
  17. METOPROLOL TARTRATE [Concomitant]
     Active Substance: METOPROLOL TARTRATE
  18. ATORVASTATIN CALCIUM [Concomitant]
     Active Substance: ATORVASTATIN CALCIUM
  19. DEXAMETHASONE [Concomitant]
     Active Substance: DEXAMETHASONE
  20. DILANTIN [Concomitant]
     Active Substance: PHENYTOIN
  21. FAMOTIDINE [Concomitant]
     Active Substance: FAMOTIDINE
  22. HEPARIN [Concomitant]
     Active Substance: HEPARIN SODIUM
  23. LASIX [Concomitant]
     Active Substance: FUROSEMIDE
  24. IBUPROFEN [Concomitant]
     Active Substance: IBUPROFEN
  25. PANTOPRAZOLE [Concomitant]
     Active Substance: PANTOPRAZOLE
  26. PREDNISOLONE [Concomitant]
     Active Substance: PREDNISOLONE
  27. TRIAMCINOLONE [Concomitant]
     Active Substance: TRIAMCINOLONE
  28. COMBIVIR [Concomitant]
     Active Substance: LAMIVUDINE\ZIDOVUDINE
  29. EMTRIVA [Concomitant]
     Active Substance: EMTRICITABINE
  30. ISENTRESS [Concomitant]
     Active Substance: RALTEGRAVIR POTASSIUM
  31. SUSTIVA [Concomitant]
     Active Substance: EFAVIRENZ
  32. PREDNISONE [Concomitant]
     Active Substance: PREDNISONE
  33. DIAZEPAM [Concomitant]
     Active Substance: DIAZEPAM
  34. PROAIR HFA [Concomitant]
     Active Substance: ALBUTEROL SULFATE
  35. MONTELUKAST SODIUM [Concomitant]
     Active Substance: MONTELUKAST SODIUM
  36. ALBUTEROL SULFATE [Concomitant]
     Active Substance: ALBUTEROL SULFATE
  37. SPIRIVA [Concomitant]
     Active Substance: TIOTROPIUM BROMIDE MONOHYDRATE
  38. ADVAIR HFA [Concomitant]
     Active Substance: FLUTICASONE PROPIONATE\SALMETEROL XINAFOATE
  39. CLOPIDOGREL BISULFATE [Concomitant]
     Active Substance: CLOPIDOGREL BISULFATE
  40. POTASSIUM CHLORIDE [Concomitant]
     Active Substance: POTASSIUM CHLORIDE

REACTIONS (17)
  - Osteoporosis [Not Recovered/Not Resolved]
  - Spinal operation [Recovered/Resolved]
  - Ankle fracture [Recovered/Resolved]
  - Spinal fracture [Recovered/Resolved]
  - Spinal compression fracture [Recovered/Resolved]
  - Spinal compression fracture [Not Recovered/Not Resolved]
  - Multiple fractures [Unknown]
  - Therapeutic product effect decreased [Unknown]
  - Rib fracture [Recovered/Resolved]
  - Osteopenia [Not Recovered/Not Resolved]
  - Bone density decreased [Unknown]
  - Pain [Unknown]
  - Emotional distress [Unknown]
  - Anxiety [Unknown]
  - Anhedonia [Unknown]
  - Economic problem [Unknown]
  - Back pain [Not Recovered/Not Resolved]

NARRATIVE: CASE EVENT DATE: 20081203
